FAERS Safety Report 5726562-X (Version None)
Quarter: 2008Q2

REPORT INFORMATION
  Report Type: 
  Country: None (occurrence: None)
  Receive Date: 20080502
  Receipt Date: 20080417
  Transmission Date: 20081010
  Serious: Yes (Hospitalization)
  Sender: FDA-Public Use
  Company Number: US-ROCHE-542134

PATIENT
  Age: 71 Year
  Sex: Male
  Weight: 107 kg

DRUGS (8)
  1. ISOTRETINOIN [Suspect]
     Indication: GLIOBLASTOMA MULTIFORME
     Dosage: ON DAYS 1-21 OF A 28 DAY CYCLE.
     Route: 065
     Dates: start: 20071009
  2. CELEBREX [Suspect]
     Indication: GLIOBLASTOMA MULTIFORME
     Route: 048
     Dates: start: 20071009
  3. TEMODAR [Suspect]
     Indication: GLIOBLASTOMA MULTIFORME
     Dosage: 7 DAYS ON, 7 DAYS OFF. DRUG REPORTED AS TEMOZOLOMIDE (S-P)
     Route: 048
     Dates: start: 20071009
  4. THALIDOMIDE [Suspect]
     Indication: GLIOBLASTOMA MULTIFORME
     Route: 048
     Dates: start: 20071009
  5. DECADRON [Suspect]
     Indication: HEADACHE
     Route: 065
     Dates: end: 20071001
  6. LASIX [Concomitant]
     Dates: start: 20071027
  7. POTASSIUM CHLORIDE [Concomitant]
  8. PRILOSEC [Concomitant]
     Dates: start: 20070101

REACTIONS (2)
  - DYSPNOEA [None]
  - GASTROOESOPHAGEAL REFLUX DISEASE [None]
